FAERS Safety Report 5394773-1 (Version None)
Quarter: 2007Q3

REPORT INFORMATION
  Report Type: 
  Country: None (occurrence: None)
  Receive Date: 20070723
  Receipt Date: 20070711
  Transmission Date: 20080115
  Serious: Yes (Other)
  Sender: FDA-Public Use
  Company Number: US-PFIZER INC-2007058088

PATIENT
  Sex: Female
  Weight: 85 kg

DRUGS (9)
  1. LYRICA [Suspect]
     Indication: NEURALGIA
  2. CLOPIDOGREL [Concomitant]
  3. LISINOPRIL [Concomitant]
  4. HYDROCHLOROTHIAZIDE [Concomitant]
  5. ACETYLSALICYLIC ACID SRT [Concomitant]
  6. LIPITOR [Concomitant]
  7. CLONIDINE [Concomitant]
  8. LEXAPRO [Concomitant]
  9. LAXATIVES [Concomitant]

REACTIONS (3)
  - BACK PAIN [None]
  - DRUG INEFFECTIVE [None]
  - NEURALGIA [None]
